FAERS Safety Report 10393410 (Version 3)
Quarter: 2014Q4

REPORT INFORMATION
  Report Type: Spontaneous
  Country: DE (occurrence: DE)
  Receive Date: 20140819
  Receipt Date: 20141009
  Transmission Date: 20150528
  Serious: Yes (Other)
  Sender: FDA-Public Use
  Company Number: PHHY2014DE101835

PATIENT
  Sex: Male

DRUGS (1)
  1. TEGRETAL [Suspect]
     Active Substance: CARBAMAZEPINE
     Indication: PRODUCT USED FOR UNKNOWN INDICATION
     Dosage: 200 MG, DAILY
     Route: 048

REACTIONS (6)
  - Immunoglobulins decreased [Unknown]
  - Seizure [Unknown]
  - Oropharyngeal pain [Unknown]
  - Rhinitis [Unknown]
  - Influenza like illness [Unknown]
  - Gamma-glutamyltransferase increased [Unknown]
